FAERS Safety Report 16123515 (Version 1)
Quarter: 2019Q1

REPORT INFORMATION
  Report Type: Report from Study
  Country: ES (occurrence: ES)
  Receive Date: 20190327
  Receipt Date: 20190327
  Transmission Date: 20190418
  Serious: Yes (Other)
  Sender: FDA-Public Use
  Company Number: ES-ROCHE-2288791

PATIENT
  Age: 60 Year
  Sex: Female
  Weight: 61.2 kg

DRUGS (2)
  1. ATEZOLIZUMAB. [Suspect]
     Active Substance: ATEZOLIZUMAB
     Indication: RENAL CELL CARCINOMA
     Dosage: MOST RECENT DOSE PRIOR TO EVENT ONSET ON 18/MAR/2019
     Route: 042
     Dates: start: 20190225
  2. RO 6874281 (FAP IL2V MAB) [Suspect]
     Active Substance: RO-6874281
     Indication: RENAL CELL CARCINOMA
     Dosage: MOST RECENT DOSE PRIOR TO EVENT ONSET ON 18/MAR/2019 (10 MG)
     Route: 042
     Dates: start: 20190225

REACTIONS (1)
  - Liver injury [Not Recovered/Not Resolved]

NARRATIVE: CASE EVENT DATE: 20190319
